FAERS Safety Report 9370913 (Version 2)
Quarter: 2013Q3

REPORT INFORMATION
  Report Type: Report from Study
  Country: US (occurrence: US)
  Receive Date: 20130627
  Receipt Date: 20130726
  Transmission Date: 20140515
  Serious: Yes (Hospitalization)
  Sender: FDA-Public Use
  Company Number: US-ROCHE-1240713

PATIENT
  Sex: Female

DRUGS (6)
  1. LUCENTIS [Suspect]
     Indication: MACULAR OEDEMA
     Dosage: OS (LEFT EYE)
     Route: 065
  2. LUCENTIS [Suspect]
     Indication: DIABETIC RETINOPATHY
  3. AMLODIPINE [Concomitant]
  4. CARVEDILOL [Concomitant]
     Route: 065
  5. CLONIDINE HCL [Concomitant]
     Route: 065
  6. FERROUS FUMARATE [Concomitant]
     Route: 065

REACTIONS (7)
  - Dyspnoea [Unknown]
  - Cardiac failure congestive [Unknown]
  - Renal failure [Unknown]
  - Visual acuity reduced [Unknown]
  - Vitreous floaters [Unknown]
  - Photopsia [Unknown]
  - Vitreous haemorrhage [Unknown]
